FAERS Safety Report 8793135 (Version 1)
Quarter: 2012Q4

REPORT INFORMATION
  Report Type: 
  Country: US (occurrence: US)
  Receive Date: 20120917
  Receipt Date: 20120917
  Transmission Date: 20130627
  Serious: Yes (Other)
  Sender: FDA-Public Use
  Company Number: US-PFIZER INC-2012225965

PATIENT
  Age: 77 Year
  Sex: Female
  Weight: 59 kg

DRUGS (4)
  1. PREMARIN [Suspect]
     Indication: VAGINAL DISORDER
     Dosage: UNK
     Route: 067
     Dates: start: 20120906, end: 20120909
  2. PREMARIN [Suspect]
     Indication: VULVOVAGINAL DISCOMFORT
  3. PRESERVISION [Concomitant]
     Indication: MACULAR DEGENERATION
     Dosage: UNK
  4. CRESTOR [Concomitant]
     Indication: BLOOD CHOLESTEROL INCREASED
     Dosage: UNK

REACTIONS (12)
  - Drug hypersensitivity [Unknown]
  - Cardiac flutter [Recovering/Resolving]
  - Swollen tongue [Recovering/Resolving]
  - Ocular discomfort [Unknown]
  - Abdominal discomfort [Recovering/Resolving]
  - Dizziness [Recovering/Resolving]
  - Nausea [Recovering/Resolving]
  - Malaise [Unknown]
  - Visual impairment [Recovering/Resolving]
  - Middle insomnia [Recovering/Resolving]
  - Fatigue [Unknown]
  - Anxiety [Recovering/Resolving]
